FAERS Safety Report 7371635-1 (Version None)
Quarter: 2011Q1

REPORT INFORMATION
  Report Type: 
  Country: None (occurrence: None)
  Receive Date: 20110307
  Receipt Date: 20110225
  Transmission Date: 20110831
  Serious: Yes (Other)
  Sender: FDA-Public Use
  Company Number: 2011PROUSA00237

PATIENT
  Age: 74 Year
  Sex: Male

DRUGS (3)
  1. PROVENGE [Suspect]
     Indication: PROSTATE CANCER METASTATIC
     Dosage: (250 ML, SINGLE, INTRAVENOUS) (250 ML, SINGLE, INTRAVENOUS) (250 ML, SINGLE INTRAVENOUS)
     Route: 042
     Dates: start: 20100720, end: 20100720
  2. PROVENGE [Suspect]
     Indication: PROSTATE CANCER METASTATIC
     Dosage: (250 ML, SINGLE, INTRAVENOUS) (250 ML, SINGLE, INTRAVENOUS) (250 ML, SINGLE INTRAVENOUS)
     Route: 042
     Dates: start: 20100802, end: 20100802
  3. PROVENGE [Suspect]
     Indication: PROSTATE CANCER METASTATIC
     Dosage: (250 ML, SINGLE, INTRAVENOUS) (250 ML, SINGLE, INTRAVENOUS) (250 ML, SINGLE INTRAVENOUS)
     Route: 042
     Dates: start: 20100816, end: 20100816

REACTIONS (1)
  - PANCREATIC CARCINOMA [None]
